FAERS Safety Report 9329954 (Version 1)
Quarter: 2013Q2

REPORT INFORMATION
  Report Type: Spontaneous
  Country: US (occurrence: US)
  Receive Date: 20130604
  Receipt Date: 20130604
  Transmission Date: 20140414
  Serious: No
  Sender: FDA-Public Use
  Company Number: US-SANOFI-AVENTIS-2012SA053696

PATIENT
  Age: 55 Year
  Sex: Male

DRUGS (9)
  1. LANTUS [Suspect]
     Indication: TYPE 2 DIABETES MELLITUS
     Dosage: DOSE:40 UNIT(S)
     Route: 058
     Dates: end: 20120409
  2. METFORMIN [Concomitant]
     Indication: DIABETES MELLITUS
  3. LISINOPRIL [Concomitant]
     Indication: HYPERTENSION
  4. VITAMIN D3 [Concomitant]
     Indication: VITAMIN D DEFICIENCY
  5. ATORVASTATIN [Concomitant]
     Indication: BLOOD CHOLESTEROL INCREASED
  6. COREG [Concomitant]
  7. LASIX [Concomitant]
  8. IMDUR [Concomitant]
  9. REPAGLINIDE [Concomitant]

REACTIONS (2)
  - Muscle spasms [Recovered/Resolved]
  - Blood glucose abnormal [Unknown]
